FAERS Safety Report 9502745 (Version 1)
Quarter: 2013Q1

REPORT INFORMATION
  Report Type: Spontaneous
  Country: US (occurrence: None)
  Receive Date: 20130225
  Receipt Date: 20130225
  Transmission Date: 20140127
  Serious: Yes (Hospitalization)
  Sender: FDA-Public Use
  Company Number: 2012000328

PATIENT
  Age: 58 Year
  Sex: Male
  Weight: 92.9 kg

DRUGS (7)
  1. KEFLEX [Suspect]
  2. TOCILIZUMAB [Concomitant]
  3. METHOTREXATE [Concomitant]
  4. FOLIC ACID [Concomitant]
  5. IBUPROFEN [Concomitant]
  6. VICODIN [Concomitant]
  7. PREDNISONE [Concomitant]

REACTIONS (1)
  - Drug hypersensitivity [None]
